FAERS Safety Report 20334991 (Version 1)
Quarter: 2022Q1

REPORT INFORMATION
  Report Type: Spontaneous
  Country: US (occurrence: US)
  Receive Date: 20220114
  Receipt Date: 20220114
  Transmission Date: 20220424
  Serious: Yes (Hospitalization, Other)
  Sender: FDA-Public Use
  Company Number: US-Vifor Pharma-VIT-2021-10269

PATIENT
  Sex: Male

DRUGS (2)
  1. VELPHORO [Suspect]
     Active Substance: SUCROFERRIC OXYHYDROXIDE
     Indication: Product used for unknown indication
     Route: 048
     Dates: end: 202009
  2. VELPHORO [Suspect]
     Active Substance: SUCROFERRIC OXYHYDROXIDE
     Route: 048
     Dates: start: 202012

REACTIONS (6)
  - Infection [Unknown]
  - Diverticulitis [Unknown]
  - Subcutaneous abscess [Unknown]
  - Renal transplant [Unknown]
  - Serum ferritin increased [Unknown]
  - Peritonitis [Unknown]

NARRATIVE: CASE EVENT DATE: 20200101
